FAERS Safety Report 9214669 (Version 3)
Quarter: 2014Q2

REPORT INFORMATION
  Report Type: Report from Study
  Country: CA (occurrence: CA)
  Receive Date: 20130405
  Receipt Date: 20140408
  Transmission Date: 20141212
  Serious: Yes (Hospitalization, Other)
  Sender: FDA-Public Use
  Company Number: CA-ROCHE-683790

PATIENT
  Age: 55 Year
  Sex: Male
  Weight: 81.6 kg

DRUGS (7)
  1. RITUXAN [Suspect]
     Indication: CHRONIC LYMPHOCYTIC LEUKAEMIA
     Dosage: PATIENT RECEIVED 6 CYCLES OF RITUXIMAB.
     Route: 042
     Dates: start: 20090601, end: 20101130
  2. DEXAMETHASONE [Suspect]
     Indication: PROPHYLAXIS
     Route: 065
  3. STEMETIL [Suspect]
     Indication: PROPHYLAXIS
     Route: 065
  4. TEGRETOL [Concomitant]
     Indication: EPILEPSY
  5. DIVALPROEX [Concomitant]
  6. CLOBAZAM [Concomitant]
  7. GAMMA GLOBULIN [Concomitant]

REACTIONS (4)
  - Convulsion [Recovered/Resolved]
  - Pneumonia bacterial [Not Recovered/Not Resolved]
  - Recurrent cancer [Not Recovered/Not Resolved]
  - Sleep disorder [Unknown]
